FAERS Safety Report 9460385 (Version 3)
Quarter: 2013Q4

REPORT INFORMATION
  Report Type: Spontaneous
  Country: CA (occurrence: CA)
  Receive Date: 20130815
  Receipt Date: 20131105
  Transmission Date: 20140711
  Serious: Yes (Other)
  Sender: FDA-Public Use
  Company Number: CA-PFIZER INC-2013237322

PATIENT
  Age: 64 Year
  Sex: Female

DRUGS (3)
  1. ALTACE [Suspect]
     Indication: HYPERTENSION
     Dosage: 2.5 MG, 2X/DAY
     Route: 065
  2. XOLAIR [Suspect]
     Indication: ASTHMA
     Dosage: 225 MG, 2X/WEEK
     Route: 058
     Dates: start: 20101129
  3. XOLAIR [Suspect]
     Dosage: 225 MG, 2X/WEEK
     Route: 058
     Dates: start: 20101201

REACTIONS (9)
  - Hypertension [Not Recovered/Not Resolved]
  - Intracranial aneurysm [Not Recovered/Not Resolved]
  - Productive cough [Not Recovered/Not Resolved]
  - Dyspnoea [Not Recovered/Not Resolved]
  - Nasal congestion [Not Recovered/Not Resolved]
  - Influenza [Recovered/Resolved]
  - Cough [Recovered/Resolved]
  - Headache [Recovered/Resolved]
  - Sinus congestion [Recovered/Resolved]
